FAERS Safety Report 9664010 (Version 1)
Quarter: 2013Q4

REPORT INFORMATION
  Report Type: Spontaneous
  Country: US (occurrence: None)
  Receive Date: 20131030
  Receipt Date: 20131030
  Transmission Date: 20140711
  Serious: Yes (Disabling)
  Sender: FDA-Public Use
  Company Number: None

PATIENT
  Age: 34 Year
  Sex: Female
  Weight: 90.72 kg

DRUGS (1)
  1. PROLIA [Suspect]
     Indication: OSTEOPOROSIS
     Dosage: GIVEN INTO/UNDER THE SKIN

REACTIONS (5)
  - Pain in jaw [None]
  - Back pain [None]
  - Pain in extremity [None]
  - Pain in extremity [None]
  - Change of bowel habit [None]
